FAERS Safety Report 11186794 (Version 2)
Quarter: 2015Q3

REPORT INFORMATION
  Report Type: Spontaneous
  Country: US (occurrence: US)
  Receive Date: 20150614
  Receipt Date: 20150819
  Transmission Date: 20151125
  Serious: Yes (Other)
  Sender: FDA-Public Use
  Company Number: US-JNJFOC-20150604127

PATIENT
  Age: 58 Year
  Sex: Female
  Weight: 102.06 kg

DRUGS (4)
  1. MOTRIN [Suspect]
     Active Substance: IBUPROFEN
     Indication: ARTHRITIS
     Route: 048
     Dates: start: 2005, end: 201502
  2. MOTRIN [Suspect]
     Active Substance: IBUPROFEN
     Indication: PAIN
     Route: 048
     Dates: start: 2005, end: 201502
  3. MOTRIN [Suspect]
     Active Substance: IBUPROFEN
     Indication: FIBROMYALGIA
     Route: 048
     Dates: start: 2005, end: 201502
  4. PROTONIX [Concomitant]
     Active Substance: PANTOPRAZOLE SODIUM
     Indication: GASTROOESOPHAGEAL REFLUX DISEASE
     Route: 065

REACTIONS (7)
  - Dizziness [Unknown]
  - Breast conserving surgery [Unknown]
  - Tension headache [Unknown]
  - Stress [Unknown]
  - Breast pain [Unknown]
  - Gastrooesophageal reflux disease [Unknown]
  - Breast cancer [Unknown]

NARRATIVE: CASE EVENT DATE: 2010
